FAERS Safety Report 4587109-7 (Version None)
Quarter: 2005Q1

REPORT INFORMATION
  Report Type: 
  Country: None (occurrence: None)
  Receive Date: 20050218
  Receipt Date: 20050211
  Transmission Date: 20050727
  Serious: Yes (Other)
  Sender: FDA-Public Use
  Company Number: PHBS2005GB02148

PATIENT
  Sex: Female

DRUGS (2)
  1. STALEVO 100 [Suspect]
     Dosage: 150 MG/D
     Route: 048
  2. STALEVO 100 [Suspect]
     Dosage: 100 MG/D
     Route: 048

REACTIONS (2)
  - DIARRHOEA [None]
  - PANCREATIC INSUFFICIENCY [None]
